FAERS Safety Report 15399641 (Version 1)
Quarter: 2018Q3

REPORT INFORMATION
  Report Type: Spontaneous
  Country: CL (occurrence: CL)
  Receive Date: 20180918
  Receipt Date: 20180918
  Transmission Date: 20181010
  Serious: Yes (Hospitalization, Other)
  Sender: FDA-Public Use
  Company Number: CL-ASTRAZENECA-2018SF17627

PATIENT
  Sex: Male

DRUGS (5)
  1. VANNAIR [Suspect]
     Active Substance: BUDESONIDE\FORMOTEROL FUMARATE DIHYDRATE
     Indication: ASTHMA
     Dosage: 1 PUFF IN THE MORNING 1 PUFF AT NIGHT
     Route: 055
     Dates: start: 201611
  2. FESEMA [Concomitant]
  3. AERIUS [Concomitant]
     Active Substance: DESLORATADINE
  4. VANNAIR [Suspect]
     Active Substance: BUDESONIDE\FORMOTEROL FUMARATE DIHYDRATE
     Indication: ASTHMA
     Dosage: 160/4,5 MCG, 2 PUFFS IN THE MORNING 1 PUFF AT NIGHT
     Route: 055
  5. NASONEX [Concomitant]
     Active Substance: MOMETASONE FUROATE

REACTIONS (1)
  - Asthmatic crisis [Unknown]
